FAERS Safety Report 16533640 (Version 9)
Quarter: 2022Q3

REPORT INFORMATION
  Report Type: Report from Study
  Country: CN (occurrence: None)
  Receive Date: 20190705
  Receipt Date: 20220711
  Transmission Date: 20221026
  Serious: Yes (Hospitalization)
  Sender: FDA-Public Use
  Company Number: CN-ROCHE-2347152

PATIENT
  Age: 56 Year
  Sex: Female
  Weight: 57 kg

DRUGS (20)
  1. ATEZOLIZUMAB [Suspect]
     Active Substance: ATEZOLIZUMAB
     Indication: Ovarian cancer
     Dosage: DATE OF MOST RECENT DOSE WAS 05/JUN/2019: 1200MG
     Route: 041
     Dates: start: 20181026
  2. BEVACIZUMAB [Suspect]
     Active Substance: BEVACIZUMAB
     Indication: Ovarian cancer
     Dosage: DATE OF MOST RECENT DOSE (840 MG) WAS 26/JUN/2019
     Route: 042
     Dates: start: 20190403
  3. CARBOPLATIN [Suspect]
     Active Substance: CARBOPLATIN
     Indication: Ovarian cancer
     Dosage: AREA UNDER THE CURVE (AUC) OF 6 MILLIGRAMS PER MILLILITER*MINUTE (MG/ML*MIN)?DATE OF MOST DOSE (650
     Route: 042
     Dates: start: 20181026
  4. PACLITAXEL [Suspect]
     Active Substance: PACLITAXEL
     Indication: Ovarian cancer
     Dosage: DATE OF MOST RECENT DOSE (276 MG) WAS 03/APR/2019
     Route: 042
     Dates: start: 20181026
  5. CALCIUM CARBONATE\CHOLECALCIFEROL [Concomitant]
     Active Substance: CALCIUM CARBONATE\CHOLECALCIFEROL
     Dates: start: 20190314, end: 20190606
  6. LANSOPRAZOLE [Concomitant]
     Active Substance: LANSOPRAZOLE
     Dates: start: 20190605, end: 20190605
  7. LANSOPRAZOLE [Concomitant]
     Active Substance: LANSOPRAZOLE
     Dates: start: 20190626, end: 20190626
  8. AMLODIPINE BESYLATE [Concomitant]
     Active Substance: AMLODIPINE BESYLATE
     Dates: start: 20190618, end: 20190701
  9. LEUCOGEN [Concomitant]
     Active Substance: LEUCOGEN
     Dates: start: 20190606, end: 20190701
  10. AMIFOSTINE [Concomitant]
     Active Substance: AMIFOSTINE
     Dates: start: 20190626, end: 20190626
  11. VITAMIN B2 [Concomitant]
     Active Substance: RIBOFLAVIN
     Indication: Mouth ulceration
     Dates: start: 20190808, end: 20190819
  12. SILIBININ [Concomitant]
     Active Substance: SILIBININ
     Dates: start: 20190701, end: 20190705
  13. SILIBININ [Concomitant]
     Active Substance: SILIBININ
     Dates: start: 20190715, end: 20190925
  14. URSODIOL [Concomitant]
     Active Substance: URSODIOL
     Dates: start: 20190705, end: 20190801
  15. PHOSPHOLIPID [Concomitant]
     Active Substance: PHOSPHOLIPID
     Dates: start: 20190705, end: 20190715
  16. ADEMETIONINE BUTANEDISULFONATE [Concomitant]
     Active Substance: ADEMETIONINE BUTANEDISULFONATE
     Dates: start: 20190705, end: 20190715
  17. ACETYLCYSTEINE [Concomitant]
     Active Substance: ACETYLCYSTEINE
     Dates: start: 20190705, end: 20190706
  18. LACTULOSE [Concomitant]
     Active Substance: LACTULOSE
     Dates: start: 20190710, end: 20190716
  19. PANCREATIN [Concomitant]
     Active Substance: PANCRELIPASE
     Dates: start: 20190712, end: 20190815
  20. POTASSIUM CHLORIDE [Concomitant]
     Active Substance: POTASSIUM CHLORIDE
     Dosage: SUSTAINED RELEASE TABLETS
     Dates: start: 20190627, end: 20190701

REACTIONS (1)
  - Liver injury [Recovered/Resolved]

NARRATIVE: CASE EVENT DATE: 20190625
